FAERS Safety Report 21105032 (Version 2)
Quarter: 2022Q4

REPORT INFORMATION
  Report Type: Spontaneous
  Country: US (occurrence: US)
  Receive Date: 20220720
  Receipt Date: 20221129
  Transmission Date: 20230112
  Serious: Yes (Hospitalization)
  Sender: FDA-Public Use
  Company Number: US-SA-SAC20220719001085

PATIENT
  Age: 58 Year
  Sex: Female

DRUGS (19)
  1. DUPIXENT [Suspect]
     Active Substance: DUPILUMAB
     Indication: Asthma
     Dosage: 300 MG, QOW
     Route: 058
     Dates: start: 20210423
  2. ACYCLOVIR [Concomitant]
     Active Substance: ACYCLOVIR
  3. AIMOVIG [Concomitant]
     Active Substance: ERENUMAB-AOOE
  4. ALBUTEROL SULFATE [Concomitant]
     Active Substance: ALBUTEROL SULFATE
     Indication: Asthma
  5. AZITHROMYCIN [Concomitant]
     Active Substance: AZITHROMYCIN
  6. BREO ELLIPTA [Concomitant]
     Active Substance: FLUTICASONE FUROATE\VILANTEROL TRIFENATATE
  7. AMITRIPTYLINE [Concomitant]
     Active Substance: AMITRIPTYLINE
  8. EPINEPHRINE [Concomitant]
     Active Substance: EPINEPHRINE
  9. GABAPENTIN [Concomitant]
     Active Substance: GABAPENTIN
  10. HIZENTRA [Concomitant]
     Active Substance: HUMAN IMMUNOGLOBULIN G
  11. NURTEC ODT [Concomitant]
     Active Substance: RIMEGEPANT SULFATE
  12. ONDANSETRON [Concomitant]
     Active Substance: ONDANSETRON
  13. PREDNISONE [Concomitant]
     Active Substance: PREDNISONE
  14. RIZATRIPTAN [Concomitant]
     Active Substance: RIZATRIPTAN
  15. ROSUVASTATIN [Concomitant]
     Active Substance: ROSUVASTATIN
  16. SUMATRIPTAN [Concomitant]
     Active Substance: SUMATRIPTAN
  17. ZOLPIDEM [Concomitant]
     Active Substance: ZOLPIDEM TARTRATE
  18. METHOCARBAMOL [Concomitant]
     Active Substance: METHOCARBAMOL
  19. XIIDRA [Concomitant]
     Active Substance: LIFITEGRAST

REACTIONS (4)
  - Asthma [Unknown]
  - Lung disorder [Unknown]
  - Impaired quality of life [Unknown]
  - Dyspnoea [Unknown]
